FAERS Safety Report 17002994 (Version 1)
Quarter: 2019Q4

REPORT INFORMATION
  Report Type: Spontaneous
  Country: BE (occurrence: BE)
  Receive Date: 20191107
  Receipt Date: 20191107
  Transmission Date: 20200122
  Serious: Yes (Other)
  Sender: FDA-Public Use
  Company Number: BE-TEVA-2019-BE-1131710

PATIENT
  Sex: Female

DRUGS (1)
  1. AMOXICLAV 875 MG/125 MG FILMTABLETTEN (AMOXICILLIN\CLAVULANIC ACID) [Suspect]
     Active Substance: AMOXICILLIN\CLAVULANIC ACID
     Route: 048

REACTIONS (1)
  - Skin discolouration [Unknown]
